FAERS Safety Report 23788039 (Version 1)
Quarter: 2024Q2

REPORT INFORMATION
  Report Type: Spontaneous
  Country: US (occurrence: US)
  Receive Date: 20240426
  Receipt Date: 20240426
  Transmission Date: 20240716
  Serious: No
  Sender: FDA-Public Use
  Company Number: US-TARO PHARMACEUTICALS USA INC.-2023TAR00391

PATIENT

DRUGS (1)
  1. FLUOROURACIL [Suspect]
     Active Substance: FLUOROURACIL
     Indication: Precancerous condition
     Dosage: UNK, I WAS PUTTING LIKE A PEA SIZED AMOUNT ALL OVER MY FOREHEAD, PUT IT ON ONCE IN THE MORNING AND O
     Route: 061
     Dates: start: 20230320, end: 20230329

REACTIONS (6)
  - Application site pain [Recovering/Resolving]
  - Swelling of eyelid [Unknown]
  - Application site pruritus [Recovering/Resolving]
  - Application site erythema [Unknown]
  - Application site rash [Unknown]
  - Rash erythematous [Unknown]

NARRATIVE: CASE EVENT DATE: 20230301
